FAERS Safety Report 5587612-7 (Version None)
Quarter: 2008Q1

REPORT INFORMATION
  Report Type: 
  Country: None (occurrence: None)
  Receive Date: 20080110
  Receipt Date: 20080104
  Transmission Date: 20080703
  Serious: Yes (Hospitalization)
  Sender: FDA-Public Use
  Company Number: US-MERCK-0712USA02138

PATIENT
  Age: 78 Year
  Sex: Female

DRUGS (17)
  1. JANUVIA [Suspect]
     Indication: DIABETES MELLITUS
     Route: 048
     Dates: start: 20071001
  2. COUMADIN [Concomitant]
     Route: 065
     Dates: end: 20071001
  3. COUMADIN [Concomitant]
     Route: 065
     Dates: start: 20071001, end: 20071201
  4. COUMADIN [Concomitant]
     Route: 065
     Dates: start: 20071201
  5. COZAAR [Concomitant]
     Route: 065
  6. COREG [Concomitant]
     Route: 065
  7. DIGOXIN [Concomitant]
     Route: 065
  8. NEURONTIN [Concomitant]
     Route: 065
  9. GEMFIBROZIL [Concomitant]
     Route: 065
  10. LASIX [Concomitant]
     Route: 065
  11. PREVACID [Concomitant]
     Route: 065
  12. SPIRONOLACTONE [Concomitant]
     Route: 065
  13. KLOR-CON [Concomitant]
     Route: 065
  14. SPIRIVA [Concomitant]
     Route: 065
  15. COMBIVENT [Concomitant]
     Route: 065
  16. ALBUTEROL [Concomitant]
     Route: 065
  17. NYSTATIN [Concomitant]
     Route: 065

REACTIONS (2)
  - INTERNATIONAL NORMALISED RATIO INCREASED [None]
  - VAGINAL HAEMORRHAGE [None]
